FAERS Safety Report 16783262 (Version 1)
Quarter: 2019Q3

REPORT INFORMATION
  Report Type: Spontaneous
  Country: CA (occurrence: CA)
  Receive Date: 20190907
  Receipt Date: 20190907
  Transmission Date: 20191005
  Serious: Yes (Other)
  Sender: FDA-Public Use
  Company Number: CA-ACCORD-154049

PATIENT
  Age: 14 Year
  Sex: Male
  Weight: 75 kg

DRUGS (1)
  1. LEVETIRACETAM. [Suspect]
     Active Substance: LEVETIRACETAM
     Indication: EPILEPSY
     Dosage: 2 EVERY 1 DAY(S)
     Route: 048

REACTIONS (2)
  - Product substitution issue [Unknown]
  - Seizure [Recovered/Resolved]
